FAERS Safety Report 23727976 (Version 1)
Quarter: 2024Q2

REPORT INFORMATION
  Report Type: Spontaneous
  Country: US (occurrence: None)
  Receive Date: 20240410
  Receipt Date: 20240410
  Transmission Date: 20240716
  Serious: No
  Sender: FDA-Public Use
  Company Number: None

PATIENT
  Age: 58 Year
  Sex: Female

DRUGS (1)
  1. AVSOLA [Suspect]
     Active Substance: INFLIXIMAB-AXXQ
     Indication: Psoriasis
     Dosage: OTHER FREQUENCY : Q6W;?

REACTIONS (3)
  - Cerebrovascular accident [None]
  - Headache [None]
  - Blood pressure inadequately controlled [None]

NARRATIVE: CASE EVENT DATE: 20240320
